FAERS Safety Report 8535458-X (Version None)
Quarter: 2012Q3

REPORT INFORMATION
  Report Type: 
  Country: None (occurrence: None)
  Receive Date: 20120725
  Receipt Date: 20120712
  Transmission Date: 20120928
  Serious: Yes (Hospitalization)
  Sender: FDA-Public Use
  Company Number: DE-MSD-1207DEU003858

PATIENT

DRUGS (5)
  1. PANTOPRAZOLE [Concomitant]
  2. SPIRIVA [Concomitant]
  3. MIRTAZAPINE [Suspect]
     Dosage: UNK
     Dates: end: 20120712
  4. NEBIVOLOL [Concomitant]
     Dosage: 5 MG, UNK
  5. INUVAIR [Concomitant]

REACTIONS (4)
  - HYPONATRAEMIA [None]
  - DISTURBANCE IN ATTENTION [None]
  - NAUSEA [None]
  - DIZZINESS [None]
